FAERS Safety Report 11777794 (Version 2)
Quarter: 2015Q4

REPORT INFORMATION
  Report Type: Spontaneous
  Country: US (occurrence: US)
  Receive Date: 20151125
  Receipt Date: 20151210
  Transmission Date: 20160304
  Serious: Yes (Hospitalization)
  Sender: FDA-Public Use
  Company Number: US-LPDUSPRD-20150920

PATIENT
  Age: 62 Year
  Sex: Female

DRUGS (7)
  1. UNSPECIFIED BROAD SPECTRUM ANTIBIOTICS [Concomitant]
     Dosage: DOSE NOT PROVIDED
     Route: 065
  2. IVIG [Concomitant]
     Active Substance: HUMAN IMMUNOGLOBULIN G
     Dosage: DOSE NOT PROVIDED
     Route: 065
  3. MAGNESIUM SULFATE INJECTION, USP (2602-25) [Suspect]
     Active Substance: MAGNESIUM SULFATE
     Dosage: 16 MEQ (ON DAY 2 AND 5)
     Route: 042
  4. PREDNISONE. [Concomitant]
     Active Substance: PREDNISONE
     Dosage: 30 MG EVERY AM
     Route: 065
  5. PYRIDOSTIGMINE [Concomitant]
     Active Substance: PYRIDOSTIGMINE
     Dosage: 60 MG TWICE A DAY
     Route: 065
  6. UNSPECIFIED STEROIDS [Concomitant]
     Active Substance: UNSPECIFIED INGREDIENT
     Dosage: DOSE NOT PROIVDED
     Route: 065
  7. PYRIDOSTIGMINE [Concomitant]
     Active Substance: PYRIDOSTIGMINE
     Dosage: 180 MG EXTENDED RELEASE AT PM
     Route: 065

REACTIONS (3)
  - Acute respiratory failure [Recovered/Resolved]
  - Condition aggravated [Recovered/Resolved]
  - Myasthenia gravis [Recovered/Resolved]
